FAERS Safety Report 15295401 (Version 2)
Quarter: 2018Q4

REPORT INFORMATION
  Report Type: Report from Study
  Country: AT (occurrence: AT)
  Receive Date: 20180820
  Receipt Date: 20181017
  Transmission Date: 20190204
  Serious: Yes (Hospitalization)
  Sender: FDA-Public Use
  Company Number: AT-PURDUE-GBR-2018-0058501

PATIENT
  Age: 63 Year
  Sex: Female
  Weight: 48 kg

DRUGS (42)
  1. GEMCITABINE [Suspect]
     Active Substance: GEMCITABINE\GEMCITABINE HYDROCHLORIDE
     Dosage: 987 MG/M2, UNK
     Route: 065
  2. ABRAXANE [Suspect]
     Active Substance: PACLITAXEL
     Dosage: 100 MG/M2, UNK
     Route: 041
  3. ABRAXANE [Suspect]
     Active Substance: PACLITAXEL
     Dosage: 125 MG/M2, UNK
     Route: 041
     Dates: start: 20180206
  4. TEGRETOL [Concomitant]
     Active Substance: CARBAMAZEPINE
     Indication: OBSESSIVE THOUGHTS
     Dosage: 200 MG, DAILY
     Route: 048
  5. DRONABINOL. [Concomitant]
     Active Substance: DRONABINOL
     Indication: DECREASED APPETITE
  6. DRONABINOL. [Concomitant]
     Active Substance: DRONABINOL
     Indication: NAUSEA
  7. LOVENOX [Concomitant]
     Active Substance: ENOXAPARIN SODIUM
     Dosage: 40 MG - 0 - 60 MG
     Route: 058
  8. ABRAXANE [Suspect]
     Active Substance: PACLITAXEL
     Indication: PANCREATIC CARCINOMA
     Dosage: 103 MG/M2, UNK
     Route: 041
  9. ANTIFLAT [Concomitant]
     Indication: FLATULENCE
     Dosage: 2
     Route: 048
     Dates: start: 20171106
  10. HYDAL [Suspect]
     Active Substance: HYDROMORPHONE HYDROCHLORIDE
     Dosage: 6 MG, DAILY
     Route: 048
  11. GEMCITABINE [Suspect]
     Active Substance: GEMCITABINE\GEMCITABINE HYDROCHLORIDE
     Dosage: 1000 MG/M2, UNK
     Route: 065
     Dates: start: 20180206
  12. GEMCITABINE [Suspect]
     Active Substance: GEMCITABINE\GEMCITABINE HYDROCHLORIDE
     Dosage: 1000 MG/M2, UNK
     Route: 065
     Dates: start: 20171206
  13. DRONABINOL. [Concomitant]
     Active Substance: DRONABINOL
     Indication: NAUSEA
     Route: 048
  14. GEMCITABINE [Suspect]
     Active Substance: GEMCITABINE\GEMCITABINE HYDROCHLORIDE
     Indication: PANCREATIC CARCINOMA
     Dosage: 800 MG/M2, UNK
     Route: 065
  15. ABRAXANE [Suspect]
     Active Substance: PACLITAXEL
     Dosage: 119 MG/M2, UNK
     Route: 041
  16. ABRAXANE [Suspect]
     Active Substance: PACLITAXEL
     Dosage: 125 MG/M2, UNK
     Route: 041
     Dates: start: 20180103, end: 20180103
  17. BUSCOPAN [Concomitant]
     Active Substance: BUTYLSCOPOLAMINE BROMIDE
     Indication: ABDOMINAL PAIN UPPER
     Dosage: 60 MILLIGRAM
     Route: 048
     Dates: start: 20171106
  18. MAGNESIUM VERLA                    /00648601/ [Concomitant]
     Active Substance: MAGNESIUM
     Indication: PROPHYLAXIS
     Dosage: UNK, DAILY, (1 DAY)
     Route: 048
  19. SEROXAT [Concomitant]
     Active Substance: PAROXETINE HYDROCHLORIDE
     Dosage: 20 MILLIGRAM
     Route: 048
  20. HYDAL [Suspect]
     Active Substance: HYDROMORPHONE HYDROCHLORIDE
     Indication: PAIN
     Dosage: 7.8 MG, DAILY, (7.8 MILLIGRAM (AS NEEDED))
     Route: 048
  21. GEMCITABINE [Suspect]
     Active Substance: GEMCITABINE\GEMCITABINE HYDROCHLORIDE
     Dosage: 1000 MILLIGRAM/SQ. METER
     Route: 065
     Dates: start: 20180228
  22. ABRAXANE [Suspect]
     Active Substance: PACLITAXEL
     Dosage: 99 MG/M2, WEEKLY
     Route: 041
     Dates: start: 20180328, end: 20180608
  23. LOVENOX [Concomitant]
     Active Substance: ENOXAPARIN SODIUM
     Indication: THROMBOSIS PROPHYLAXIS
     Dosage: UNK, (40 MG - 0 - 60 MG)
     Route: 058
  24. LOVENOX [Concomitant]
     Active Substance: ENOXAPARIN SODIUM
     Dosage: 40 MG - 0 - 60 MG
     Route: 058
  25. GEMCITABINE [Suspect]
     Active Substance: GEMCITABINE\GEMCITABINE HYDROCHLORIDE
     Dosage: 1007 MG/M2, UNK
     Route: 065
  26. ABRAXANE [Suspect]
     Active Substance: PACLITAXEL
     Dosage: 125 MG/M2, UNK
     Route: 041
     Dates: start: 20180124, end: 20180124
  27. KREON                              /00014701/ [Concomitant]
     Active Substance: PANCRELIPASE
     Dosage: 50000 IU (INTERNATIONAL UNIT)
     Route: 048
     Dates: start: 20171106, end: 20171109
  28. TEGRETOL [Concomitant]
     Active Substance: CARBAMAZEPINE
     Indication: MANIA
     Dosage: 200 MILLIGRAM
     Route: 048
  29. GEMCITABINE [Suspect]
     Active Substance: GEMCITABINE\GEMCITABINE HYDROCHLORIDE
     Dosage: 930 MG/M2, UNK
     Route: 065
     Dates: start: 201802
  30. GEMCITABINE [Suspect]
     Active Substance: GEMCITABINE\GEMCITABINE HYDROCHLORIDE
     Dosage: 1000 MG/M2, UNK
     Route: 065
     Dates: start: 20180124
  31. KREON                              /00014701/ [Concomitant]
     Active Substance: PANCRELIPASE
     Indication: PANCREATIC CARCINOMA
     Dosage: 40000 IU, UNK
     Route: 048
     Dates: start: 20180209
  32. DRONABINOL. [Concomitant]
     Active Substance: DRONABINOL
     Indication: PAIN
     Dosage: UNK
     Route: 048
     Dates: start: 20180110
  33. LOVENOX [Concomitant]
     Active Substance: ENOXAPARIN SODIUM
     Dosage: 80 MILLIGRAM
     Route: 058
     Dates: start: 20180209
  34. GEMCITABINE [Suspect]
     Active Substance: GEMCITABINE\GEMCITABINE HYDROCHLORIDE
     Dosage: 1000 MILLIGRAM/SQ. METER
     Route: 065
     Dates: start: 20180328, end: 20180608
  35. GEMCITABINE [Suspect]
     Active Substance: GEMCITABINE\GEMCITABINE HYDROCHLORIDE
     Dosage: 1000 MG/M2, UNK
     Route: 065
     Dates: start: 20180103, end: 20180103
  36. GEMCITABINE [Suspect]
     Active Substance: GEMCITABINE\GEMCITABINE HYDROCHLORIDE
     Dosage: 1000 MG/M2, UNK
     Route: 065
     Dates: start: 20171106
  37. ABRAXANE [Suspect]
     Active Substance: PACLITAXEL
     Dosage: 99 MILLIGRAM/SQ. METER
     Route: 041
     Dates: start: 20180228
  38. ABRAXANE [Suspect]
     Active Substance: PACLITAXEL
     Dosage: 125 MG/M2, UNK
     Route: 041
     Dates: start: 20171206
  39. ABRAXANE [Suspect]
     Active Substance: PACLITAXEL
     Dosage: 125 MG/M2, UNK
     Route: 041
     Dates: start: 20171106
  40. EMEND [Concomitant]
     Active Substance: APREPITANT
     Indication: ANTIEMETIC SUPPORTIVE CARE
     Dosage: UNK
     Route: 041
  41. SEROXAT [Concomitant]
     Active Substance: PAROXETINE HYDROCHLORIDE
     Indication: DEPRESSION
     Dosage: 20 MG, DAILY
     Route: 048
  42. PARKEMED [Concomitant]
     Active Substance: MEFENAMIC ACID
     Indication: PAIN
     Dosage: 500 MG, UNK
     Route: 048

REACTIONS (18)
  - Neutropenia [Recovered/Resolved]
  - Mucosal inflammation [Recovered/Resolved]
  - Nausea [Recovered/Resolved]
  - Subclavian vein thrombosis [Not Recovered/Not Resolved]
  - Pancreatic carcinoma [Unknown]
  - Fatigue [Recovered/Resolved]
  - Gastroenteritis norovirus [Recovered/Resolved]
  - Head discomfort [Recovered/Resolved]
  - Mucosal infection [Not Recovered/Not Resolved]
  - Gastrointestinal infection [Recovered/Resolved]
  - Fatigue [Recovered/Resolved]
  - Nausea [Recovered/Resolved]
  - Pain in extremity [Recovered/Resolved]
  - Pain [Not Recovered/Not Resolved]
  - Arthralgia [Not Recovered/Not Resolved]
  - Constipation [Recovered/Resolved]
  - Rash [Recovered/Resolved]
  - Nausea [Recovered/Resolved]

NARRATIVE: CASE EVENT DATE: 20171113
